FAERS Safety Report 8817131 (Version 1)
Quarter: 2012Q4

REPORT INFORMATION
  Report Type: Spontaneous
  Country: US (occurrence: None)
  Receive Date: 20121003
  Receipt Date: 20121003
  Transmission Date: 20130627
  Serious: Yes (Other)
  Sender: FDA-Public Use
  Company Number: None

PATIENT
  Age: 60 Year
  Sex: Female
  Weight: 61.69 kg

DRUGS (1)
  1. LIPITOR [Suspect]
     Indication: HYPERCHOLESTERAEMIA
     Route: 048
     Dates: start: 20120821, end: 20120911

REACTIONS (1)
  - Migraine [None]
